FAERS Safety Report 8172803-1 (Version None)
Quarter: 2012Q1

REPORT INFORMATION
  Report Type: 
  Country: None (occurrence: None)
  Receive Date: 20120229
  Receipt Date: 20120223
  Transmission Date: 20120608
  Serious: Yes (Life-Threatening)
  Sender: FDA-Public Use
  Company Number: JP-ROXANE LABORATORIES, INC.-2012-RO-00721RO

PATIENT
  Age: 71 Year
  Sex: Female
  Weight: 40 kg

DRUGS (14)
  1. SUXAMENTHONIUM [Suspect]
     Dosage: 40 MG
     Route: 008
  2. VECURONIUM BROMIDE [Suspect]
     Indication: ANAESTHESIA
     Dosage: 2 MG
     Route: 008
  3. POVIDONE IODINE [Suspect]
     Indication: INFECTION PROPHYLAXIS
     Route: 061
  4. LIDOCAINE [Suspect]
     Route: 008
  5. ATROPINE [Suspect]
     Dosage: 0.5 MG
     Route: 042
  6. LIDOCAINE [Suspect]
     Indication: ANAESTHESIA
     Route: 008
  7. KETAMINE HYDROCHLORIDE [Suspect]
     Indication: INDUCTION OF ANAESTHESIA
     Dosage: 20 MG
     Route: 008
  8. KETAMINE HYDROCHLORIDE [Suspect]
     Route: 008
  9. EPHEDRINE SUL CAP [Suspect]
     Dosage: 12 MG
     Route: 042
  10. DIAZEPAM [Suspect]
     Indication: PREMEDICATION
     Dosage: 4 MG
     Route: 048
  11. FENTANYL [Suspect]
     Indication: INDUCTION OF ANAESTHESIA
     Dosage: 100 MCG
     Route: 008
  12. PROPOFOL [Suspect]
     Indication: INDUCTION OF ANAESTHESIA
     Dosage: 60 MG
     Route: 008
  13. PROPOFOL [Suspect]
     Route: 008
  14. ROXATIDINE HYDROCHLORIDE [Suspect]
     Indication: PREMEDICATION
     Dosage: 75 MG
     Route: 048

REACTIONS (2)
  - CARDIAC ARREST [None]
  - ANAPHYLACTIC REACTION [None]
